FAERS Safety Report 5937770-7 (Version None)
Quarter: 2008Q4

REPORT INFORMATION
  Report Type: 
  Country: None (occurrence: None)
  Receive Date: 20081031
  Receipt Date: 20081022
  Transmission Date: 20090506
  Serious: Yes (Death, Hospitalization)
  Sender: FDA-Public Use
  Company Number: NZ-GENENTECH-269264

PATIENT
  Age: 67 Year
  Sex: Male

DRUGS (1)
  1. METALYSE [Suspect]
     Indication: ELECTROCARDIOGRAM ST SEGMENT ELEVATION
     Dosage: UNK
     Route: 042
     Dates: start: 20080901

REACTIONS (3)
  - CHEST PAIN [None]
  - DEATH [None]
  - ELECTROCARDIOGRAM ST SEGMENT ELEVATION [None]
